APPROVED DRUG PRODUCT: DOXEPIN HYDROCHLORIDE
Active Ingredient: DOXEPIN HYDROCHLORIDE
Strength: EQ 6MG BASE
Dosage Form/Route: TABLET;ORAL
Application: A218564 | Product #002 | TE Code: AB
Applicant: AJANTA PHARMA LTD
Approved: Jul 1, 2024 | RLD: No | RS: No | Type: RX